FAERS Safety Report 9000598 (Version 3)
Quarter: 2013Q2

REPORT INFORMATION
  Report Type: Spontaneous
  Country: GB (occurrence: None)
  Receive Date: 20121221
  Receipt Date: 20130410
  Transmission Date: 20140414
  Serious: Yes (Other)
  Sender: FDA-Public Use
  Company Number: AUR-APL-2012-05329

PATIENT
  Age: 55 Year
  Sex: Male

DRUGS (5)
  1. SIMVASTATIN [Suspect]
     Indication: BLOOD CHOLESTEROL INCREASED
     Dates: start: 20110613, end: 20120925
  2. RAMIPRIL [Suspect]
     Indication: HYPERTENSION
     Dates: end: 20120206
  3. AMLODIPINE (AMLODIPINE) [Suspect]
     Indication: HYPERTENSION
  4. LOSARTAN [Suspect]
     Indication: PRODUCT USED FOR UNKNOWN INDICATION
  5. LERCANIDIPINE [Suspect]
     Indication: PRODUCT USED FOR UNKNOWN INDICATION

REACTIONS (18)
  - Throat irritation [None]
  - Confusional state [None]
  - Blood pressure increased [None]
  - Fatigue [None]
  - Dyspnoea [None]
  - Myalgia [None]
  - Dysstasia [None]
  - Gait disturbance [None]
  - Feeling abnormal [None]
  - Osteoarthritis [None]
  - Fatigue [None]
  - Nightmare [None]
  - Stress [None]
  - Depression [None]
  - Polymyositis [None]
  - Drug interaction [None]
  - Product substitution issue [None]
  - Pain [None]
